FAERS Safety Report 7638328-4 (Version None)
Quarter: 2011Q3

REPORT INFORMATION
  Report Type: 
  Country: None (occurrence: None)
  Receive Date: 20110727
  Receipt Date: 20110727
  Transmission Date: 20111222
  Serious: Yes (Other)
  Sender: FDA-Public Use
  Company Number: None

PATIENT
  Age: 90 Year
  Sex: Female
  Weight: 65.77 kg

DRUGS (1)
  1. DIPHENHYDRAMINE HCL [Suspect]
     Indication: PRURITUS
     Dosage: 1 CAPSULE
     Dates: start: 20110703, end: 20110706

REACTIONS (15)
  - VERTIGO [None]
  - CRYING [None]
  - EUPHORIC MOOD [None]
  - FEAR [None]
  - AGGRESSION [None]
  - INSOMNIA [None]
  - LOGORRHOEA [None]
  - FATIGUE [None]
  - AMNESIA [None]
  - PARKINSONISM [None]
  - HALLUCINATION [None]
  - EYE MOVEMENT DISORDER [None]
  - DYSKINESIA [None]
  - PARANOIA [None]
  - OBSESSIVE-COMPULSIVE DISORDER [None]
